FAERS Safety Report 10156764 (Version 1)
Quarter: 2014Q2

REPORT INFORMATION
  Report Type: Spontaneous
  Country: US (occurrence: None)
  Receive Date: 20140506
  Receipt Date: 20140506
  Transmission Date: 20141212
  Serious: Yes (Hospitalization, Disabling, Other)
  Sender: FDA-Public Use
  Company Number: None

PATIENT
  Age: 25 Year
  Sex: Female
  Weight: 99.79 kg

DRUGS (1)
  1. CHANTIX [Suspect]
     Indication: SMOKING CESSATION THERAPY
     Dosage: 1 PILL, ONCE DAILY, TAKEN BY MOUTH?
     Route: 048

REACTIONS (15)
  - Abnormal behaviour [None]
  - Suicidal ideation [None]
  - Insomnia [None]
  - Fatigue [None]
  - Dizziness [None]
  - Depressed mood [None]
  - Anxiety [None]
  - Visual impairment [None]
  - Hallucination [None]
  - Aggression [None]
  - Anger [None]
  - Mania [None]
  - Feeling abnormal [None]
  - Paranoia [None]
  - Confusional state [None]
